FAERS Safety Report 7331232-0 (Version None)
Quarter: 2011Q1

REPORT INFORMATION
  Report Type: 
  Country: None (occurrence: None)
  Receive Date: 20110304
  Receipt Date: 20110224
  Transmission Date: 20110831
  Serious: Yes (Other)
  Sender: FDA-Public Use
  Company Number: AU-PFIZER INC-2011018970

PATIENT
  Age: 42 Year
  Sex: Male
  Weight: 107 kg

DRUGS (1)
  1. PRISTIQ [Suspect]
     Indication: MAJOR DEPRESSION
     Dosage: 100 MG, 1X/DAY
     Route: 048
     Dates: start: 20100417

REACTIONS (7)
  - THINKING ABNORMAL [None]
  - INDIFFERENCE [None]
  - APATHY [None]
  - DISSOCIATION [None]
  - ASPERGER'S DISORDER [None]
  - DRUG INEFFECTIVE [None]
  - ABNORMAL BEHAVIOUR [None]
